FAERS Safety Report 10403886 (Version 1)
Quarter: 2014Q3

REPORT INFORMATION
  Report Type: Spontaneous
  Country: US (occurrence: US)
  Receive Date: 20140822
  Receipt Date: 20140822
  Transmission Date: 20150326
  Serious: No
  Sender: FDA-Public Use
  Company Number: US-B.I. PHARMACEUTICALS,INC./RIDGEFIELD-2014-BI-38421BP

PATIENT
  Sex: Male

DRUGS (8)
  1. OMEPRAZOLE. [Concomitant]
     Active Substance: OMEPRAZOLE
     Dosage: 20 MG
     Route: 065
  2. VIAGRA [Concomitant]
     Active Substance: SILDENAFIL CITRATE
     Dosage: 50 MG
     Route: 065
  3. TOPROL XL [Concomitant]
     Active Substance: METOPROLOL SUCCINATE
     Dosage: 50 MG
     Route: 065
  4. IRON [Concomitant]
     Active Substance: IRON
     Dosage: 1 TABLET WEEKLY
     Route: 065
  5. DIGOXIN. [Concomitant]
     Active Substance: DIGOXIN
     Dosage: 0.125 MCG
     Route: 065
  6. ASACOL [Concomitant]
     Active Substance: MESALAMINE
     Dosage: 2 TABLETS QD
     Route: 065
  7. GLUCOSAMINE [Concomitant]
     Active Substance: GLUCOSAMINE
     Dosage: 1000 MG
     Route: 065
  8. PRADAXA [Suspect]
     Active Substance: DABIGATRAN ETEXILATE MESYLATE
     Indication: ATRIAL FIBRILLATION
     Dosage: 300 MG
     Route: 065

REACTIONS (3)
  - Gastroduodenitis [Unknown]
  - Iron deficiency anaemia [Unknown]
  - Gastritis [Unknown]
